FAERS Safety Report 16077648 (Version 1)
Quarter: 2019Q1

REPORT INFORMATION
  Report Type: Spontaneous
  Country: US (occurrence: US)
  Receive Date: 20190315
  Receipt Date: 20190315
  Transmission Date: 20190418
  Serious: No
  Sender: FDA-Public Use
  Company Number: US-TEVA-2019-US-1015845

PATIENT

DRUGS (1)
  1. CELECOXIB TEVA [Suspect]
     Active Substance: CELECOXIB
     Route: 065

REACTIONS (3)
  - Headache [Unknown]
  - Malaise [Unknown]
  - Product substitution issue [Unknown]
